FAERS Safety Report 14853726 (Version 1)
Quarter: 2018Q2

REPORT INFORMATION
  Report Type: Spontaneous
  Country: US (occurrence: US)
  Receive Date: 20180419
  Receipt Date: 20180419
  Transmission Date: 20180711
  Serious: No
  Sender: FDA-Public Use
  Company Number: None

PATIENT
  Sex: Female

DRUGS (1)
  1. TALTZ [Suspect]
     Active Substance: IXEKIZUMAB
     Indication: PSORIASIS
     Dosage: 80MG :Q4WKS; SQ?
     Route: 058
     Dates: start: 201803

REACTIONS (3)
  - Nausea [None]
  - Diarrhoea [None]
  - Abdominal discomfort [None]
